FAERS Safety Report 9426890 (Version 1)
Quarter: 2013Q3

REPORT INFORMATION
  Report Type: Spontaneous
  Country: US (occurrence: US)
  Receive Date: 20130730
  Receipt Date: 20130730
  Transmission Date: 20140515
  Serious: No
  Sender: FDA-Public Use
  Company Number: US-PFIZER INC-2013218457

PATIENT
  Age: 53 Year
  Sex: Female
  Weight: 108 kg

DRUGS (2)
  1. PREMARIN [Suspect]
     Indication: HOT FLUSH
     Dosage: 0.625 MG, 1X/DAY
     Dates: start: 2000, end: 2007
  2. PREMARIN [Suspect]
     Indication: MENOPAUSAL SYMPTOMS

REACTIONS (3)
  - Fall [Unknown]
  - Head injury [Unknown]
  - Tinnitus [Unknown]
